FAERS Safety Report 16073436 (Version 7)
Quarter: 2020Q3

REPORT INFORMATION
  Report Type: Spontaneous
  Country: NL (occurrence: US)
  Receive Date: 20190314
  Receipt Date: 20200723
  Transmission Date: 20201102
  Serious: Yes (Other)
  Sender: FDA-Public Use
  Company Number: US-LEXICON PHARMACEUTICALS, INC-19-1606-00279

PATIENT
  Age: 59 Year
  Sex: Female

DRUGS (17)
  1. AFINITOR [Suspect]
     Active Substance: EVEROLIMUS
     Indication: CARCINOID TUMOUR
  2. UREA. [Concomitant]
     Active Substance: UREA
  3. LOMOTIL [Concomitant]
     Active Substance: ATROPINE SULFATE\DIPHENOXYLATE HYDROCHLORIDE
  4. TELOTRISTAT ETHYL [Suspect]
     Active Substance: TELOTRISTAT ETHYL
     Indication: CARCINOID TUMOUR
     Route: 048
     Dates: start: 20170606
  5. ZOFRAN [Concomitant]
     Active Substance: ONDANSETRON HYDROCHLORIDE
  6. CLOTRIMAZOLE AND BETAMETHASONE DIPROPIONATE [Concomitant]
     Active Substance: BETAMETHASONE\BETAMETHASONE DIPROPIONATE\CLOTRIMAZOLE
  7. AFINITOR [Suspect]
     Active Substance: EVEROLIMUS
     Indication: CARCINOID TUMOUR OF THE STOMACH
     Route: 048
     Dates: start: 201708
  8. SANDOSTATIN LAR DEPOT [Suspect]
     Active Substance: OCTREOTIDE ACETATE
     Indication: CARCINOID TUMOUR
  9. TELOTRISTAT ETHYL [Suspect]
     Active Substance: TELOTRISTAT ETHYL
     Indication: CARCINOID TUMOUR OF THE STOMACH
  10. VITAMIN D [Concomitant]
     Active Substance: VITAMIN D NOS
  11. COLESTID [Concomitant]
     Active Substance: COLESTIPOL HYDROCHLORIDE
  12. CREON [Concomitant]
     Active Substance: PANCRELIPASE AMYLASE\PANCRELIPASE LIPASE\PANCRELIPASE PROTEASE
  13. TELOTRISTAT ETHYL [Suspect]
     Active Substance: TELOTRISTAT ETHYL
     Indication: LUNG NEOPLASM MALIGNANT
     Route: 048
     Dates: start: 20170407
  14. AFINITOR [Suspect]
     Active Substance: EVEROLIMUS
     Indication: METASTASES TO LUNG
  15. SANDOSTATIN LAR DEPOT [Suspect]
     Active Substance: OCTREOTIDE ACETATE
     Indication: METASTASES TO LUNG
     Route: 065
  16. RANITIDINE. [Concomitant]
     Active Substance: RANITIDINE
  17. SUTENT [Concomitant]
     Active Substance: SUNITINIB MALATE

REACTIONS (23)
  - Memory impairment [Unknown]
  - Acne [Unknown]
  - Dysgeusia [Unknown]
  - Weight fluctuation [Unknown]
  - Blood glucose increased [Unknown]
  - Rash [Unknown]
  - Disease progression [Not Recovered/Not Resolved]
  - Urinary tract infection [Recovering/Resolving]
  - Liver operation [Not Recovered/Not Resolved]
  - Surgery [Not Recovered/Not Resolved]
  - Hepatic neoplasm [Not Recovered/Not Resolved]
  - Abnormal sensation in eye [Unknown]
  - Fatigue [Not Recovered/Not Resolved]
  - Muscular weakness [Not Recovered/Not Resolved]
  - Radioembolisation [Unknown]
  - Neuropathy peripheral [Unknown]
  - Fine motor skill dysfunction [Unknown]
  - Blister [Unknown]
  - Dry skin [Unknown]
  - Head titubation [Unknown]
  - Pain in extremity [Not Recovered/Not Resolved]
  - Psychomotor skills impaired [Unknown]
  - Peripheral swelling [Unknown]
